FAERS Safety Report 12107387 (Version 2)
Quarter: 2017Q3

REPORT INFORMATION
  Report Type: Spontaneous
  Country: FR (occurrence: FR)
  Receive Date: 20160223
  Receipt Date: 20170811
  Transmission Date: 20171127
  Serious: Yes (Hospitalization)
  Sender: FDA-Public Use
  Company Number: FR-ROCHE-1714738

PATIENT
  Age: 46 Year
  Sex: Male

DRUGS (11)
  1. INIPOMP [Concomitant]
     Active Substance: PANTOPRAZOLE SODIUM
     Route: 048
  2. ZOPHREN [Concomitant]
     Active Substance: ONDANSETRON
     Route: 065
     Dates: start: 20160120, end: 20160122
  3. TAMIFLU [Suspect]
     Active Substance: OSELTAMIVIR PHOSPHATE
     Indication: ANTIVIRAL PROPHYLAXIS
     Route: 048
     Dates: start: 20160201, end: 20160210
  4. ETOPOSIDE. [Suspect]
     Active Substance: ETOPOSIDE
     Indication: HODGKIN^S DISEASE RECURRENT
     Route: 042
     Dates: start: 20160120, end: 20160122
  5. CARBOPLATINE [Suspect]
     Active Substance: CARBOPLATIN
     Indication: HODGKIN^S DISEASE RECURRENT
     Dosage: 700 MG ONLY ONE ADMINISTRATION
     Route: 042
     Dates: start: 20160121
  6. HOLOXAN [Suspect]
     Active Substance: IFOSFAMIDE
     Indication: HODGKIN^S DISEASE RECURRENT
     Dosage: 9560 MG ONLY ONE ADMINISTRATION
     Route: 042
     Dates: start: 20160121
  7. MESNA. [Concomitant]
     Active Substance: MESNA
     Route: 065
     Dates: start: 20160122
  8. PRIMPERAN [Concomitant]
     Active Substance: METOCLOPRAMIDE HYDROCHLORIDE
     Dosage: 10 MG AS NEEDED
     Route: 048
  9. XANAX [Concomitant]
     Active Substance: ALPRAZOLAM
     Dosage: 0.5 MG AS NEEDED
     Route: 048
  10. GRANOCYTE 34 [Concomitant]
     Active Substance: LENOGRASTIM
     Route: 065
     Dates: start: 20160125, end: 20160201
  11. MESNA. [Concomitant]
     Active Substance: MESNA
     Route: 065
     Dates: start: 20160121

REACTIONS (1)
  - Acute coronary syndrome [Unknown]

NARRATIVE: CASE EVENT DATE: 20160208
